FAERS Safety Report 6751542-5 (Version None)
Quarter: 2010Q2

REPORT INFORMATION
  Report Type: 
  Country: None (occurrence: None)
  Receive Date: 20100528
  Receipt Date: 20100519
  Transmission Date: 20101027
  Serious: Yes (Other)
  Sender: FDA-Public Use
  Company Number: 012186

PATIENT
  Age: 50 Year
  Sex: Female

DRUGS (1)
  1. NEUPRO [Suspect]
     Indication: RESTLESS LEGS SYNDROME

REACTIONS (3)
  - ACCIDENT [None]
  - FALL [None]
  - SUDDEN ONSET OF SLEEP [None]
